FAERS Safety Report 5957510-5 (Version None)
Quarter: 2008Q4

REPORT INFORMATION
  Report Type: 
  Country: None (occurrence: None)
  Receive Date: 20081112
  Receipt Date: 20081104
  Transmission Date: 20090506
  Serious: Yes (Other)
  Sender: FDA-Public Use
  Company Number: CHPA2008US19100

PATIENT
  Sex: Male

DRUGS (1)
  1. MAALOX ANTACID/ANTIGAS MAX LIQ (NCH) (MAGNESIUM HYDROXIDE, ALUMINUM HY [Suspect]
     Indication: DYSPEPSIA
     Dosage: 6 TSP, ONCE/SINCE, ORAL
     Route: 048
     Dates: start: 20081001

REACTIONS (3)
  - FAECES DISCOLOURED [None]
  - INTENTIONAL DRUG MISUSE [None]
  - OESOPHAGEAL ULCER [None]
